FAERS Safety Report 9571334 (Version 2)
Quarter: 2013Q4

REPORT INFORMATION
  Report Type: Spontaneous
  Country: IT (occurrence: IT)
  Receive Date: 20131001
  Receipt Date: 20131205
  Transmission Date: 20140711
  Serious: Yes (Hospitalization, Other)
  Sender: FDA-Public Use
  Company Number: IT-PFIZER INC-2013278319

PATIENT
  Age: 56 Year
  Sex: Male

DRUGS (7)
  1. CRESTOR [Suspect]
     Indication: HYPERCHOLESTEROLAEMIA
     Dosage: 20 MG, DAILY
     Route: 048
  2. TARGOSID [Suspect]
     Indication: ANTIBIOTIC THERAPY
     Dosage: 800 MG, DAILY
     Route: 042
     Dates: start: 20130809, end: 20130824
  3. MEROPENEM [Suspect]
     Indication: ANTIBIOTIC THERAPY
     Dosage: 3000 MG, DAILY
     Route: 042
     Dates: start: 20130809, end: 20130824
  4. ISENTRESS [Suspect]
     Indication: ANTIRETROVIRAL THERAPY
     Dosage: 800 MG, DAILY
     Route: 048
     Dates: start: 20100201, end: 20130822
  5. REYATAZ [Suspect]
     Indication: ANTIVIRAL TREATMENT
     Dosage: 300 MG, DAILY
     Route: 048
     Dates: start: 20100201, end: 20130822
  6. NORVIR [Suspect]
     Indication: ANTIRETROVIRAL THERAPY
     Dosage: 100 MG, DAILY
     Route: 048
     Dates: start: 20100201, end: 20130822
  7. PANTORC [Concomitant]
     Indication: PROPHYLAXIS AGAINST GASTROINTESTINAL ULCER
     Dosage: 40 MG, 1X/DAY
     Route: 042
     Dates: start: 20130809, end: 20130820

REACTIONS (2)
  - Rhabdomyolysis [Recovered/Resolved]
  - Renal impairment [Unknown]
